FAERS Safety Report 25299279 (Version 1)
Quarter: 2025Q2

REPORT INFORMATION
  Report Type: Report from Study
  Country: PT (occurrence: PT)
  Receive Date: 20250512
  Receipt Date: 20250512
  Transmission Date: 20250717
  Serious: Yes (Death)
  Sender: ACCORD
  Company Number: None

PATIENT
  Age: 52 Year
  Sex: Female
  Weight: 58 kg

DRUGS (52)
  1. CARBOPLATIN [Suspect]
     Active Substance: CARBOPLATIN
     Indication: HER2 positive breast cancer
     Dosage: MOST RECENT DOSE: 30/DEC/2022
     Dates: start: 20221214, end: 20221230
  2. HERCEPTIN [Suspect]
     Active Substance: TRASTUZUMAB
     Indication: HER2 positive breast cancer
     Dates: start: 2019, end: 20190729
  3. ADRUCIL [Suspect]
     Active Substance: FLUOROURACIL
     Indication: HER2 positive breast cancer
     Dosage: MOST RECENT DOSE: 03/JAN/2021
     Dates: start: 20201013
  4. CYTOXAN [Suspect]
     Active Substance: CYCLOPHOSPHAMIDE
     Indication: HER2 positive breast cancer
     Dosage: MOST RECENT DOSE: 03/JAN/2021
     Dates: start: 20201013, end: 20210103
  5. FLUOROPLEX [Suspect]
     Active Substance: FLUOROURACIL
     Indication: HER2 positive breast cancer
     Dosage: MOST RECENT DOSE: 03/JAN/2021
     Dates: start: 20201013, end: 20210103
  6. GEMZAR [Suspect]
     Active Substance: GEMCITABINE HYDROCHLORIDE
     Indication: HER2 positive breast cancer
     Dosage: MOST RECENT DOSE: 30/DEC/2022
     Dates: start: 20221214, end: 20221230
  7. NAVELBINE [Suspect]
     Active Substance: VINORELBINE TARTRATE
     Indication: HER2 positive breast cancer
     Dosage: MOST RECENT DOSE: 01/OCT/2020
     Dates: start: 20200310, end: 20201001
  8. ADO-TRASTUZUMAB EMTANSINE [Suspect]
     Active Substance: ADO-TRASTUZUMAB EMTANSINE
     Indication: HER2 positive breast cancer
     Dates: start: 20180417, end: 20180508
  9. EFUDEX [Suspect]
     Active Substance: FLUOROURACIL
     Indication: HER2 positive breast cancer
     Dosage: MOST RECENT DOSE: 03/JAN/2021
     Dates: start: 20201013, end: 20210103
  10. PARAPLATIN [Suspect]
     Active Substance: CARBOPLATIN
     Indication: HER2 positive breast cancer
     Dosage: MOST RECENT DOSE: 30/DEC/2022
     Dates: start: 20221214, end: 20221230
  11. TRASTUZUMAB DERUXTECAN [Suspect]
     Active Substance: TRASTUZUMAB DERUXTECAN
     Indication: HER2 positive breast cancer
     Dates: start: 20210714, end: 20221124
  12. TAXOTERE [Suspect]
     Active Substance: DOCETAXEL
     Indication: HER2 positive breast cancer
     Dosage: MOST RECENT DOSE: 29/JUN/2021
     Dates: start: 20210104, end: 20210629
  13. TAXOL [Suspect]
     Active Substance: PACLITAXEL
     Indication: HER2 positive breast cancer
     Dosage: MOST RECENT DOSE: 11/FEB/2020
     Dates: start: 20190813, end: 20200211
  14. PERJETA [Suspect]
     Active Substance: PERTUZUMAB
     Indication: HER2 positive breast cancer
     Dosage: MOST RECENT DOSE: 18/FEB/2020
     Dates: start: 20190903, end: 20200218
  15. LAPATINIB [Suspect]
     Active Substance: LAPATINIB
     Indication: HER2 positive breast cancer
     Dosage: MOST RECENT DOSE: 23/JUL/2019
     Dates: start: 20190207, end: 20190723
  16. TREXALL [Suspect]
     Active Substance: METHOTREXATE SODIUM
     Indication: HER2 positive breast cancer
     Dosage: MOST RECENT DOSE: 03/JAN/2021
     Dates: start: 20201013, end: 20210103
  17. XELODA [Suspect]
     Active Substance: CAPECITABINE
     Indication: Product used for unknown indication
     Dates: start: 20180821, end: 20181114
  18. RAMIPRIL [Concomitant]
     Active Substance: RAMIPRIL
     Indication: Ejection fraction decreased
     Dates: start: 20180308, end: 20221230
  19. PYRIDOXINE [Concomitant]
     Active Substance: PYRIDOXINE
     Dates: end: 20221230
  20. ACETAMINOPHEN [Concomitant]
     Active Substance: ACETAMINOPHEN
     Dates: end: 20221230
  21. PREDNISONE [Concomitant]
     Active Substance: PREDNISONE
  22. PREGABALIN [Concomitant]
     Active Substance: PREGABALIN
     Dates: end: 20221230
  23. OXYCODONE [Concomitant]
     Active Substance: OXYCODONE
     Dates: end: 20221230
  24. NALOXONE [Concomitant]
     Active Substance: NALOXONE
     Dates: end: 20221230
  25. ACETYLCYSTEINE [Concomitant]
     Active Substance: ACETYLCYSTEINE
     Dates: end: 20221230
  26. NALOXONE HYDROCHLORIDE\OXYCODONE HYDROCHLORIDE [Concomitant]
     Active Substance: NALOXONE HYDROCHLORIDE\OXYCODONE HYDROCHLORIDE
     Dates: start: 20170529, end: 20221230
  27. AZITHROMYCIN [Concomitant]
     Active Substance: AZITHROMYCIN
  28. ZOLEDRONIC ACID [Concomitant]
     Active Substance: ZOLEDRONIC ACID
     Dates: start: 20170509, end: 20221230
  29. BACIDERMA [Concomitant]
     Dates: end: 20221230
  30. BISOPROLOL [Concomitant]
     Active Substance: BISOPROLOL
     Dates: start: 20171129, end: 20221230
  31. BUDESONIDE [Concomitant]
     Active Substance: BUDESONIDE
     Dates: end: 20221230
  32. CALCIUM CARBONATE [Concomitant]
     Active Substance: CALCIUM CARBONATE
     Dates: end: 20221230
  33. CALCIUM\CHOLECALCIFEROL [Concomitant]
     Active Substance: CALCIUM\CHOLECALCIFEROL
     Dates: start: 20170509, end: 20221230
  34. CETIRIZINE [Concomitant]
     Active Substance: CETIRIZINE HYDROCHLORIDE
     Dates: end: 20221230
  35. CHOLECALCIFEROL [Concomitant]
     Active Substance: CHOLECALCIFEROL
     Dates: end: 20221230
  36. FERRIC CARBOXYMALTOSE [Concomitant]
     Active Substance: FERRIC CARBOXYMALTOSE
  37. FILGRASTIM [Concomitant]
     Active Substance: FILGRASTIM
     Dates: end: 20221230
  38. IPRATROPIUM BROMIDE [Concomitant]
     Active Substance: IPRATROPIUM BROMIDE
     Dates: end: 20221230
  39. IVABRADINE HYDROCHLORIDE [Concomitant]
     Active Substance: IVABRADINE HYDROCHLORIDE
     Indication: Ejection fraction decreased
     Dates: start: 20180308, end: 20221230
  40. LEVOCETIRIZINE DIHYDROCHLORIDE [Concomitant]
     Active Substance: LEVOCETIRIZINE DIHYDROCHLORIDE
  41. LOPERAMIDE [Concomitant]
     Active Substance: LOPERAMIDE
     Dates: end: 20221230
  42. METOCLOPRAMIDE [Concomitant]
     Active Substance: METOCLOPRAMIDE
     Dates: end: 20221230
  43. HERCEPTIN [Suspect]
     Active Substance: TRASTUZUMAB
     Indication: HER2 positive breast cancer
     Dosage: MOST RECENT DOSE PRIOR TO THE EVENT: 13/OCT/2020, 14/DEC/2022
     Dates: start: 20180529, end: 20190729
  44. HERCEPTIN [Suspect]
     Active Substance: TRASTUZUMAB
     Indication: HER2 positive breast cancer
     Dates: start: 20180529, end: 20190117
  45. HERCEPTIN [Suspect]
     Active Substance: TRASTUZUMAB
     Indication: HER2 positive breast cancer
     Dates: start: 20180529
  46. ADO-TRASTUZUMAB EMTANSINE [Suspect]
     Active Substance: ADO-TRASTUZUMAB EMTANSINE
     Indication: HER2 positive breast cancer
     Dosage: MOST RECENT DOSE: 08/MAR/2018, 17/APR/2018
     Dates: start: 20170614, end: 20180308
  47. TRASTUZUMAB DERUXTECAN [Suspect]
     Active Substance: TRASTUZUMAB DERUXTECAN
     Indication: HER2 positive breast cancer
     Dosage: 29/JUL/2019
     Dates: start: 20190308
  48. TRASTUZUMAB DERUXTECAN [Suspect]
     Active Substance: TRASTUZUMAB DERUXTECAN
     Indication: HER2 positive breast cancer
     Dosage: 18/MAR/2018
     Dates: start: 20170714
  49. HERCEPTIN [Suspect]
     Active Substance: TRASTUZUMAB
     Indication: HER2 positive breast cancer
     Dates: start: 20221214, end: 20221230
  50. PERJETA [Suspect]
     Active Substance: PERTUZUMAB
     Indication: HER2 positive breast cancer
     Dates: start: 20190903
  51. XELODA [Suspect]
     Active Substance: CAPECITABINE
     Indication: Product used for unknown indication
     Dates: start: 20180529, end: 20180820
  52. XELODA [Suspect]
     Active Substance: CAPECITABINE
     Indication: Product used for unknown indication
     Dates: start: 20181115, end: 20181206

REACTIONS (2)
  - Pneumonia [Fatal]
  - Pancytopenia [Fatal]

NARRATIVE: CASE EVENT DATE: 20221227
